FAERS Safety Report 4988576-7 (Version None)
Quarter: 2006Q2

REPORT INFORMATION
  Report Type: 
  Country: None (occurrence: None)
  Receive Date: 20060502
  Receipt Date: 20060421
  Transmission Date: 20061013
  Serious: Yes (Other)
  Sender: FDA-Public Use
  Company Number: JP-JNJFOC-20060306827

PATIENT
  Sex: Female

DRUGS (4)
  1. ITRIZOLE [Suspect]
     Indication: NAIL TINEA
     Route: 048
     Dates: start: 20060226, end: 20060304
  2. UNKNOWN DRUG [Interacting]
     Route: 048
     Dates: start: 20060305, end: 20060306
  3. TERBINAFINE HCL [Concomitant]
     Route: 061
  4. TERBINAFINE HCL [Concomitant]
     Indication: NAIL TINEA
     Route: 061

REACTIONS (4)
  - DRUG INTERACTION [None]
  - LYMPHOPENIA [None]
  - PYREXIA [None]
  - RASH [None]
